FAERS Safety Report 4774551-4 (Version None)
Quarter: 2005Q3

REPORT INFORMATION
  Report Type: 
  Country: None (occurrence: None)
  Receive Date: 20050919
  Receipt Date: 20050919
  Transmission Date: 20060218
  Serious: Yes (Hospitalization)
  Sender: FDA-Public Use
  Company Number: None

PATIENT
  Age: 81 Year
  Sex: Female
  Weight: 50 kg

DRUGS (7)
  1. IMIPENEM/CILASTATIN 250MG [Suspect]
     Indication: SEPSIS
     Dosage: 250MG Q12H IV
     Route: 042
     Dates: start: 20050820, end: 20050823
  2. ZOCOR [Concomitant]
  3. PREVACID [Concomitant]
  4. DIGOXIN [Concomitant]
  5. CARVEDILOL [Concomitant]
  6. LEVOPHED DRIP [Concomitant]
  7. NEO-SYNEPHRINE DRIP [Concomitant]

REACTIONS (1)
  - THROMBOCYTOPENIA [None]
